FAERS Safety Report 24290924 (Version 1)
Quarter: 2024Q3

REPORT INFORMATION
  Report Type: Spontaneous
  Country: JP (occurrence: JP)
  Receive Date: 20240906
  Receipt Date: 20240906
  Transmission Date: 20241017
  Serious: Yes (Life-Threatening, Other)
  Sender: SANDOZ
  Company Number: JP-SANDOZ-SDZ2024JP077914

PATIENT
  Age: 9 Month
  Sex: Male
  Weight: 8.9 kg

DRUGS (6)
  1. ANAPEINE [Suspect]
     Active Substance: ROPIVACAINE HYDROCHLORIDE
     Indication: General anaesthesia
     Dosage: 3.5 ML
     Route: 065
  2. FLUMAZENIL [Suspect]
     Active Substance: FLUMAZENIL
     Indication: Delayed recovery from anaesthesia
     Dosage: UNK
     Route: 065
  3. FENTANYL [Suspect]
     Active Substance: FENTANYL\FENTANYL CITRATE
     Indication: General anaesthesia
     Dosage: 10 UG
     Route: 065
  4. MIDAZOLAM HYDROCHLORIDE [Suspect]
     Active Substance: MIDAZOLAM HYDROCHLORIDE
     Indication: General anaesthesia
     Dosage: 4 MG
     Route: 048
  5. ROCURONIUM BROMIDE [Suspect]
     Active Substance: ROCURONIUM BROMIDE
     Indication: General anaesthesia
     Dosage: 7.5 MG
     Route: 065
  6. SEVOFLURANE [Suspect]
     Active Substance: SEVOFLURANE
     Indication: General anaesthesia
     Dosage: UNK
     Route: 065

REACTIONS (4)
  - Delayed recovery from anaesthesia [Recovered/Resolved]
  - Apnoea [Recovering/Resolving]
  - Oxygen saturation decreased [Unknown]
  - Off label use [Unknown]
